FAERS Safety Report 7767590-2 (Version None)
Quarter: 2011Q3

REPORT INFORMATION
  Report Type: 
  Country: None (occurrence: None)
  Receive Date: 20110922
  Receipt Date: 20110913
  Transmission Date: 20111222
  Serious: Yes (Other)
  Sender: FDA-Public Use
  Company Number: US-BAYER-2011-020011

PATIENT
  Age: 21 Year
  Sex: Female
  Weight: 67.12 kg

DRUGS (6)
  1. YAZ [Suspect]
     Dosage: UNK
     Dates: start: 20060101, end: 20060101
  2. YASMIN [Suspect]
     Dosage: UNK
     Dates: start: 20080101, end: 20090201
  3. YAZ [Suspect]
     Dosage: UNK
     Route: 048
     Dates: start: 20030101, end: 20040101
  4. YASMIN [Suspect]
     Dosage: UNK
     Route: 048
     Dates: start: 20030101, end: 20040101
  5. YAZ [Suspect]
     Dosage: UNK
     Dates: start: 20080101, end: 20090201
  6. YASMIN [Suspect]
     Dosage: UNK
     Dates: start: 20060101, end: 20060101

REACTIONS (4)
  - BILIARY COLIC [None]
  - CHOLECYSTITIS CHRONIC [None]
  - INJURY [None]
  - PAIN [None]
